FAERS Safety Report 12932993 (Version 2)
Quarter: 2016Q4

REPORT INFORMATION
  Report Type: Spontaneous
  Country: US (occurrence: US)
  Receive Date: 20161111
  Receipt Date: 20161128
  Transmission Date: 20170207
  Serious: Yes (Death, Other)
  Sender: FDA-Public Use
  Company Number: US-PFIZER INC-2016523434

PATIENT
  Age: 37 Year
  Sex: Male

DRUGS (3)
  1. ETOPOSIDE. [Suspect]
     Active Substance: ETOPOSIDE
     Indication: GERM CELL NEOPLASM
     Dosage: FOUR CYCLES
  2. CISPLATIN. [Suspect]
     Active Substance: CISPLATIN
     Indication: GERM CELL NEOPLASM
     Dosage: FOUR CYCLES
  3. BLEOMYCIN SULFATE [Suspect]
     Active Substance: BLEOMYCIN SULFATE
     Indication: GERM CELL NEOPLASM
     Dosage: FOUR CYCLES

REACTIONS (3)
  - Myelodysplastic syndrome [Unknown]
  - Second primary malignancy [Unknown]
  - Bone marrow failure [Fatal]
